FAERS Safety Report 19538488 (Version 7)
Quarter: 2023Q1

REPORT INFORMATION
  Report Type: Report from Study
  Country: DE (occurrence: DE)
  Receive Date: 20210713
  Receipt Date: 20230322
  Transmission Date: 20230417
  Serious: Yes (Other)
  Sender: FDA-Public Use
  Company Number: DE-002147023-NVSC2020DE280061

PATIENT
  Sex: Female

DRUGS (8)
  1. LETROZOLE [Suspect]
     Active Substance: LETROZOLE
     Indication: Breast cancer metastatic
     Dosage: 2.5 MILLIGRAM, QD
     Route: 048
     Dates: start: 20190201
  2. KISQALI [Suspect]
     Active Substance: RIBOCICLIB
     Indication: Breast cancer metastatic
     Dosage: 600 MG, QD(SCHEMA 21 DAYS INTAKE, 7 DAYS PAUSE)
     Route: 048
     Dates: start: 20190201, end: 20190424
  3. KISQALI [Suspect]
     Active Substance: RIBOCICLIB
     Dosage: 400 MG, QD(SCHEMA 21 DAYS INTAKE, 7 DAYS PAUSE)
     Route: 048
     Dates: start: 20190430
  4. LERCANIDIPINE [Concomitant]
     Active Substance: LERCANIDIPINE
     Indication: Hypertension
     Dosage: UNK (JAN-2020)
     Route: 048
     Dates: end: 20200205
  5. LERCANIDIPINE [Concomitant]
     Active Substance: LERCANIDIPINE
     Dosage: UNK, QD (05-FEB-2020)
     Route: 065
     Dates: end: 20200205
  6. SODIUM PERCHLORATE [Concomitant]
     Active Substance: SODIUM PERCHLORATE
     Indication: Prophylaxis
     Dosage: 1200 MG (1200 MG FOR 2 WEEKS BEFORE AND AFTER)
     Route: 048
     Dates: start: 20210112
  7. CARBIMAZOLE [Concomitant]
     Active Substance: CARBIMAZOLE
     Indication: Prophylaxis
     Dosage: 10 MG, QD(10MG DAILY FOR 2 WEEKS BEFORE AND AFTER)
     Route: 048
     Dates: start: 20210112
  8. CARBIMAZOLE [Concomitant]
     Active Substance: CARBIMAZOLE
     Dosage: 10 MG, QD(10MG DAILY FOR 2 WEEKS BEFORE AND AFTER)
     Route: 048

REACTIONS (14)
  - Osteosclerosis [Recovered/Resolved]
  - Pathological fracture [Recovered/Resolved]
  - Pelvic pain [Recovered/Resolved]
  - Fall [Recovered/Resolved]
  - Osteoarthritis [Unknown]
  - Spinal pain [Recovered/Resolved]
  - Injury [Recovered/Resolved]
  - Goitre [Not Recovered/Not Resolved]
  - Plantar fasciitis [Unknown]
  - Dry eye [Unknown]
  - Limb injury [Recovered/Resolved]
  - Blood creatinine increased [Not Recovered/Not Resolved]
  - Carpal tunnel syndrome [Not Recovered/Not Resolved]
  - Contraindicated product prescribed [Recovered/Resolved]

NARRATIVE: CASE EVENT DATE: 20190626
